FAERS Safety Report 4371996-1 (Version None)
Quarter: 2004Q2

REPORT INFORMATION
  Report Type: 
  Country: None (occurrence: None)
  Receive Date: 20040603
  Receipt Date: 20040603
  Transmission Date: 20050107
  Serious: No
  Sender: FDA-Public Use
  Company Number: None

PATIENT
  Age: 40 Year
  Sex: Female
  Weight: 65.7716 kg

DRUGS (7)
  1. OGESTREL 0.5/50-28 [Suspect]
     Indication: ENDOMETRIOSIS
     Dosage: 1 PER DAY ORAL
     Route: 048
     Dates: start: 20001001, end: 20040601
  2. OVRAL [Suspect]
     Indication: ENDOMETRIOSIS
     Dosage: 1 PER DAY ORAL
     Route: 048
     Dates: start: 19850101, end: 20040601
  3. ZOLOFT [Concomitant]
  4. LIPITOR [Concomitant]
  5. BENEDRYL [Concomitant]
  6. MELATONIN [Concomitant]
  7. WELLBUTRIN [Concomitant]

REACTIONS (7)
  - ABDOMINAL DISTENSION [None]
  - ENDOMETRIOSIS [None]
  - HAEMORRHAGE [None]
  - PAIN [None]
  - PHARMACEUTICAL PRODUCT COMPLAINT [None]
  - STRESS SYMPTOMS [None]
  - SWELLING [None]
